FAERS Safety Report 11383439 (Version 1)
Quarter: 2015Q3

REPORT INFORMATION
  Report Type: Spontaneous
  Country: IE (occurrence: IE)
  Receive Date: 20150814
  Receipt Date: 20150814
  Transmission Date: 20151125
  Serious: Yes (Other)
  Sender: FDA-Public Use
  Company Number: US-ASTRAZENECA-2015SE78321

PATIENT
  Sex: Female

DRUGS (1)
  1. DAXAS [Suspect]
     Active Substance: ROFLUMILAST
     Indication: PRODUCT USED FOR UNKNOWN INDICATION
     Dosage: UNK
     Route: 048
     Dates: start: 20150710

REACTIONS (8)
  - Nausea [Unknown]
  - Diarrhoea [Unknown]
  - Dysphagia [Unknown]
  - Headache [Unknown]
  - Dyspnoea [Unknown]
  - Abdominal pain upper [Unknown]
  - Oropharyngeal pain [Unknown]
  - Neck pain [Unknown]

NARRATIVE: CASE EVENT DATE: 201507
